FAERS Safety Report 7210147-2 (Version None)
Quarter: 2011Q1

REPORT INFORMATION
  Report Type: 
  Country: None (occurrence: None)
  Receive Date: 20110105
  Receipt Date: 20101223
  Transmission Date: 20110831
  Serious: Yes (Hospitalization)
  Sender: FDA-Public Use
  Company Number: FR-ELI_LILLY_AND_COMPANY-FR201012005689

PATIENT
  Sex: Male

DRUGS (4)
  1. THERALENE [Concomitant]
     Dosage: 5 MG, 4/D
     Route: 048
  2. RISPERDAL [Concomitant]
     Dosage: 2 MG, DAILY (1/D)
     Route: 048
  3. SALT SOLUTIONS [Concomitant]
  4. PROZAC [Suspect]
     Route: 048
     Dates: start: 20101014, end: 20101118

REACTIONS (5)
  - NORMOCHROMIC NORMOCYTIC ANAEMIA [None]
  - OEDEMA [None]
  - HYPONATRAEMIA [None]
  - HYPOCALCAEMIA [None]
  - HYPOTHYROIDISM [None]
